FAERS Safety Report 16774601 (Version 3)
Quarter: 2019Q3

REPORT INFORMATION
  Report Type: Report from Study
  Country: US (occurrence: US)
  Receive Date: 20190905
  Receipt Date: 20190905
  Transmission Date: 20191005
  Serious: No
  Sender: FDA-Public Use
  Company Number: US-EMD SERONO-9089294

PATIENT
  Age: 51 Year
  Sex: Female

DRUGS (2)
  1. MAVENCLAD [Suspect]
     Active Substance: CLADRIBINE
     Indication: RELAPSING-REMITTING MULTIPLE SCLEROSIS
     Dosage: FIRST CYCLE THERAPY
     Route: 048
     Dates: start: 20190430, end: 20190505
  2. MAVENCLAD [Suspect]
     Active Substance: CLADRIBINE
     Dosage: SECOND CYCLE THERAPY
     Route: 048
     Dates: start: 20190523, end: 20190527

REACTIONS (7)
  - Hypersomnia [Unknown]
  - Retching [Unknown]
  - Vomiting [Unknown]
  - Decreased appetite [Unknown]
  - Nausea [Recovered/Resolved]
  - Fatigue [Unknown]
  - Accidental overdose [Unknown]

NARRATIVE: CASE EVENT DATE: 20190430
